FAERS Safety Report 6696716-7 (Version None)
Quarter: 2010Q2

REPORT INFORMATION
  Report Type: 
  Country: None (occurrence: None)
  Receive Date: 20100421
  Receipt Date: 20100224
  Transmission Date: 20101027
  Serious: No
  Sender: FDA-Public Use
  Company Number: US-000052

PATIENT
  Sex: Male

DRUGS (1)
  1. KUVAN [Suspect]
     Dates: start: 20091101

REACTIONS (2)
  - LYMPHADENOPATHY [None]
  - VIRAL INFECTION [None]
